FAERS Safety Report 25651425 (Version 1)
Quarter: 2025Q3

REPORT INFORMATION
  Report Type: Spontaneous
  Country: US (occurrence: US)
  Receive Date: 20250806
  Receipt Date: 20250806
  Transmission Date: 20251021
  Serious: Yes (Hospitalization)
  Sender: AMGEN
  Company Number: US-AMGEN-USASP2025151148

PATIENT
  Age: 4 Decade
  Sex: Female

DRUGS (7)
  1. PREDNISONE [Suspect]
     Active Substance: PREDNISONE
     Indication: Asthma
     Route: 048
  2. PREDNISONE [Suspect]
     Active Substance: PREDNISONE
     Route: 048
  3. FLUTICASONE [Concomitant]
     Active Substance: FLUTICASONE
     Indication: Asthma
  4. FLUTICASONE [Concomitant]
     Active Substance: FLUTICASONE
  5. BENZONATATE [Concomitant]
     Active Substance: BENZONATATE
     Indication: Asthma
  6. BENZONATATE [Concomitant]
     Active Substance: BENZONATATE
  7. PANTOPRAZOLE [Concomitant]
     Active Substance: PANTOPRAZOLE
     Indication: Asthma

REACTIONS (1)
  - Hodgkin^s disease [Recovered/Resolved]
